FAERS Safety Report 9331085 (Version 2)
Quarter: 2013Q2

REPORT INFORMATION
  Report Type: Report from Study
  Country: JP (occurrence: JP)
  Receive Date: 20130605
  Receipt Date: 20130613
  Transmission Date: 20140414
  Serious: Yes (Hospitalization, Other)
  Sender: FDA-Public Use
  Company Number: JP-BRISTOL-MYERS SQUIBB COMPANY-18965822

PATIENT
  Age: 15 Year
  Sex: Female

DRUGS (3)
  1. ARIPIPRAZOLE [Suspect]
     Indication: SCHIZOPHRENIA
     Dosage: 6MG-29NOV12-21MAR13?12MG-22MAR13-26MAY13?27MAY13-UNK
     Route: 048
     Dates: start: 20121127
  2. AKINETON [Concomitant]
     Dates: start: 20121127
  3. LENDORMIN [Concomitant]
     Dates: start: 20121127

REACTIONS (1)
  - Schizophrenia [Not Recovered/Not Resolved]
